FAERS Safety Report 22266020 (Version 2)
Quarter: 2023Q2

REPORT INFORMATION
  Report Type: Spontaneous
  Country: TW (occurrence: TW)
  Receive Date: 20230428
  Receipt Date: 20230512
  Transmission Date: 20230722
  Serious: Yes (Death, Life-Threatening, Hospitalization)
  Sender: FDA-Public Use
  Company Number: TW-TEVA-2023-TW-2880320

PATIENT
  Age: 30 Year
  Sex: Female

DRUGS (6)
  1. FENTANYL [Suspect]
     Active Substance: FENTANYL
     Indication: Ischaemic stroke
     Route: 065
  2. PREDNISOLONE [Suspect]
     Active Substance: PREDNISOLONE
     Indication: Systemic lupus erythematosus
     Route: 065
  3. TACROLIMUS [Suspect]
     Active Substance: TACROLIMUS
     Indication: Systemic lupus erythematosus
     Route: 065
  4. NICARDIPINE [Suspect]
     Active Substance: NICARDIPINE
     Indication: Ischaemic stroke
     Dosage: NICARDIPINE PUMP
     Route: 065
  5. MANNITOL [Suspect]
     Active Substance: MANNITOL
     Indication: Ischaemic stroke
     Route: 065
  6. PRIVIGEN [Suspect]
     Active Substance: HUMAN IMMUNOGLOBULIN G
     Indication: Ischaemic stroke
     Route: 042

REACTIONS (5)
  - Ischaemic stroke [Fatal]
  - Subarachnoid haemorrhage [Unknown]
  - Brain oedema [Unknown]
  - Brain herniation [Unknown]
  - Drug ineffective [Unknown]
